FAERS Safety Report 5378553-9 (Version None)
Quarter: 2007Q3

REPORT INFORMATION
  Report Type: 
  Country: None (occurrence: None)
  Receive Date: 20070702
  Receipt Date: 20070702
  Transmission Date: 20080115
  Serious: Yes (Hospitalization)
  Sender: FDA-Public Use
  Company Number: None

PATIENT
  Age: 87 Year
  Sex: Male

DRUGS (1)
  1. WARFARIN SODIUM [Suspect]
     Indication: DEEP VEIN THROMBOSIS
     Dosage: 4MG EVERY DAY PO
     Route: 048
     Dates: start: 20020627, end: 20070627

REACTIONS (1)
  - INTERNATIONAL NORMALISED RATIO INCREASED [None]
